FAERS Safety Report 9413647 (Version 4)
Quarter: 2013Q2

REPORT INFORMATION
  Report Type: Spontaneous
  Country: US (occurrence: None)
  Receive Date: 20130319
  Receipt Date: 20130402
  Transmission Date: 20140414
  Serious: Yes (Death, Congenital Anomaly)
  Sender: FDA-Public Use
  Company Number: ADR-2013UNK001

PATIENT
  Age: 147 Day
  Sex: 0

DRUGS (2)
  1. NEVIRAPINE [Suspect]
     Indication: ACQUIRED IMMUNODEFICIENCY SYNDROME
     Dosage: 400 MG/DAY + ORAL, PO
     Route: 048
     Dates: start: 20060302
  2. TRUVADA, TVD [Concomitant]

REACTIONS (3)
  - Abortion induced [None]
  - Maternal drugs affecting foetus [None]
  - Congenital anomaly [None]
